FAERS Safety Report 5946101-8 (Version None)
Quarter: 2008Q4

REPORT INFORMATION
  Report Type: 
  Country: None (occurrence: None)
  Receive Date: 20081110
  Receipt Date: 20081028
  Transmission Date: 20090506
  Serious: Yes (Hospitalization, Other)
  Sender: FDA-Public Use
  Company Number: US-ROCHE-552292

PATIENT
  Sex: Male
  Weight: 95.3 kg

DRUGS (4)
  1. ACCUTANE [Suspect]
     Indication: DRUG USE FOR UNKNOWN INDICATION
     Route: 065
     Dates: start: 19990122, end: 19991222
  2. WELLBUTRIN [Suspect]
     Indication: ANTIDEPRESSANT THERAPY
     Route: 065
  3. ZYPREXA [Suspect]
     Indication: ANTIDEPRESSANT THERAPY
     Route: 065
  4. ERYTHROMYCIN [Concomitant]
     Indication: ACNE
     Route: 065

REACTIONS (20)
  - ANOREXIA [None]
  - ANTICHOLINERGIC SYNDROME [None]
  - ARTHRALGIA [None]
  - BIPOLAR DISORDER [None]
  - BRONCHITIS [None]
  - CROHN'S DISEASE [None]
  - DEPRESSION [None]
  - GASTROOESOPHAGEAL REFLUX DISEASE [None]
  - HEADACHE [None]
  - INFLAMMATORY BOWEL DISEASE [None]
  - IRRITABLE BOWEL SYNDROME [None]
  - LOSS OF CONSCIOUSNESS [None]
  - MYALGIA [None]
  - OVERDOSE [None]
  - POST CONCUSSION SYNDROME [None]
  - PYREXIA [None]
  - SINUSITIS [None]
  - SUICIDE ATTEMPT [None]
  - UVEITIS [None]
  - WEIGHT DECREASED [None]
